FAERS Safety Report 7141787-7 (Version None)
Quarter: 2010Q4

REPORT INFORMATION
  Report Type: 
  Country: None (occurrence: None)
  Receive Date: 20101207
  Receipt Date: 20101124
  Transmission Date: 20110411
  Serious: Yes (Other)
  Sender: FDA-Public Use
  Company Number: US-ROCHE-628941

PATIENT
  Sex: Male
  Weight: 80.7 kg

DRUGS (3)
  1. ACCUTANE [Suspect]
     Indication: ACNE
     Route: 065
     Dates: start: 20020819, end: 20021017
  2. ACCUTANE [Suspect]
     Dosage: ACCUTANE 40 QD/BID
     Route: 065
     Dates: start: 20021018, end: 20021209
  3. ACCUTANE [Suspect]
     Dosage: ACCUTANE 40 12 TABS PER WK (BID M-F; QD ON WEEKENDS).
     Route: 065
     Dates: start: 20021210, end: 20030320

REACTIONS (7)
  - CHOLANGITIS SCLEROSING [None]
  - COLITIS ULCERATIVE [None]
  - CROHN'S DISEASE [None]
  - EMOTIONAL DISTRESS [None]
  - INFLAMMATORY BOWEL DISEASE [None]
  - INJURY [None]
  - INTESTINAL HAEMORRHAGE [None]
